FAERS Safety Report 13704072 (Version 1)
Quarter: 2017Q2

REPORT INFORMATION
  Report Type: Report from Study
  Country: HK (occurrence: HK)
  Receive Date: 20170629
  Receipt Date: 20170629
  Transmission Date: 20170830
  Serious: Yes (Hospitalization)
  Sender: FDA-Public Use
  Company Number: HK-ROCHE-1957559

PATIENT
  Age: 70 Year
  Sex: Female

DRUGS (5)
  1. RIBAVIRIN. [Suspect]
     Active Substance: RIBAVIRIN
     Indication: CHRONIC HEPATITIS C
     Dosage: 400 TO 1200 MG
     Route: 065
  2. INSULIN [Concomitant]
     Active Substance: INSULIN NOS
  3. DASABUVIR SODIUM MONOHYDRATE/OMBITASVIR/PARITAPREVIR/RITONAVIR [Suspect]
     Active Substance: DASABUVIR\OMBITASVIR\PARITAPREVIR\RITONAVIR
     Indication: CHRONIC HEPATITIS C
     Route: 065
  4. NIFEDIPINE. [Concomitant]
     Active Substance: NIFEDIPINE
  5. ASPIRIN. [Concomitant]
     Active Substance: ASPIRIN

REACTIONS (2)
  - Vomiting [Unknown]
  - Acute kidney injury [Unknown]
